FAERS Safety Report 5081945-9 (Version None)
Quarter: 2006Q3

REPORT INFORMATION
  Report Type: 
  Country: None (occurrence: None)
  Receive Date: 20060811
  Receipt Date: 20060801
  Transmission Date: 20061208
  Serious: Yes (Other)
  Sender: FDA-Public Use
  Company Number: GXKR2006DE04578

PATIENT
  Sex: Male

DRUGS (2)
  1. PREDNISONE [Suspect]
     Indication: NEPHROTIC SYNDROME
     Dosage: 80 MG/24 H; SEE IMAGE
  2. TACROLIMUS                          (TACROLIMUS) [Suspect]
     Indication: NEPHROTIC SYNDROME
     Dosage: 6 MG/24 H, 0.07 MG/KG

REACTIONS (6)
  - BASE EXCESS NEGATIVE [None]
  - BLOOD ALBUMIN INCREASED [None]
  - DIABETES MELLITUS INSULIN-DEPENDENT [None]
  - DISEASE RECURRENCE [None]
  - KETONURIA [None]
  - NEPHROTIC SYNDROME [None]
